FAERS Safety Report 25670739 (Version 1)
Quarter: 2025Q3

REPORT INFORMATION
  Report Type: Spontaneous
  Country: US (occurrence: US)
  Receive Date: 20250812
  Receipt Date: 20250812
  Transmission Date: 20251021
  Serious: Yes (Other)
  Sender: ELI LILLY AND COMPANY
  Company Number: US-ELI_LILLY_AND_COMPANY-US202508000350

PATIENT
  Age: 56 Year
  Sex: Female

DRUGS (2)
  1. ZEPBOUND [Suspect]
     Active Substance: TIRZEPATIDE
     Indication: Weight control
     Route: 065
     Dates: start: 20250724
  2. LISINOPRIL [Concomitant]
     Active Substance: LISINOPRIL
     Indication: Blood pressure measurement

REACTIONS (15)
  - Pain [Unknown]
  - Hypotension [Unknown]
  - Swelling face [Unknown]
  - Gallbladder enlargement [Unknown]
  - Kidney enlargement [Unknown]
  - Hepatomegaly [Unknown]
  - Pancreatic enlargement [Unknown]
  - Hyperhidrosis [Unknown]
  - Pallor [Unknown]
  - Erythema [Unknown]
  - Muscle twitching [Unknown]
  - Lethargy [Unknown]
  - Malaise [Unknown]
  - Gastrooesophageal reflux disease [Unknown]
  - Constipation [Unknown]

NARRATIVE: CASE EVENT DATE: 20250724
